FAERS Safety Report 12241555 (Version 1)
Quarter: 2016Q2

REPORT INFORMATION
  Report Type: Report from Study
  Country: AU (occurrence: AU)
  Receive Date: 20160406
  Receipt Date: 20160406
  Transmission Date: 20160815
  Serious: Yes (Death)
  Sender: FDA-Public Use
  Company Number: AU-CELGENE-AUS-2016037631

PATIENT

DRUGS (3)
  1. REVLIMID [Suspect]
     Active Substance: LENALIDOMIDE
     Indication: PLASMA CELL MYELOMA
     Route: 048
  2. AZACITIDINE ORAL (CC-486) [Suspect]
     Active Substance: AZACITIDINE
     Indication: NASOPHARYNGEAL CANCER
     Route: 048
  3. DEXAMETHASONE. [Suspect]
     Active Substance: DEXAMETHASONE
     Indication: NASOPHARYNGEAL CANCER
     Route: 065

REACTIONS (2)
  - Plasma cell myeloma [Fatal]
  - Death [Fatal]
